FAERS Safety Report 12463281 (Version 1)
Quarter: 2016Q2

REPORT INFORMATION
  Report Type: Spontaneous
  Country: US (occurrence: US)
  Receive Date: 20160614
  Receipt Date: 20160614
  Transmission Date: 20160815
  Serious: Yes (Hospitalization)
  Sender: FDA-Public Use
  Company Number: US-STRIDES ARCOLAB LIMITED-2016SP006522

PATIENT

DRUGS (1)
  1. VANCOMYCIN [Suspect]
     Active Substance: VANCOMYCIN
     Indication: STAPHYLOCOCCAL ABSCESS
     Dosage: UNK
     Route: 065

REACTIONS (18)
  - Cough [Recovered/Resolved]
  - Skin exfoliation [Recovered/Resolved]
  - Hypotension [Recovered/Resolved]
  - Lymphadenopathy [Recovered/Resolved]
  - Respiratory acidosis [Recovered/Resolved]
  - Exercise tolerance decreased [Recovered/Resolved]
  - Lung infiltration [Recovered/Resolved]
  - Drug reaction with eosinophilia and systemic symptoms [Recovered/Resolved]
  - Erythema [Recovered/Resolved]
  - Lymphocytosis [Recovered/Resolved]
  - Pyrexia [Recovered/Resolved]
  - Rash [Recovered/Resolved]
  - Dyspnoea at rest [Recovered/Resolved]
  - Rales [Recovered/Resolved]
  - Chest discomfort [Recovered/Resolved]
  - Pleural effusion [Recovered/Resolved]
  - Eosinophilia [Recovered/Resolved]
  - Respiratory distress [Recovered/Resolved]
